FAERS Safety Report 5132877-9 (Version None)
Quarter: 2006Q4

REPORT INFORMATION
  Report Type: 
  Country: None (occurrence: None)
  Receive Date: 20061023
  Receipt Date: 20060921
  Transmission Date: 20070319
  Serious: Yes (Other)
  Sender: FDA-Public Use
  Company Number: US-JNJFOC-20060905683

PATIENT
  Sex: Female
  Weight: 56.7 kg

DRUGS (7)
  1. FENTANYL TRANSDERMAL SYSTEM [Suspect]
     Indication: OSTEOPOROSIS
     Route: 062
  2. FENTANYL TRANSDERMAL SYSTEM [Suspect]
     Indication: OSTEOARTHRITIS
     Route: 062
  3. COUMADIN [Suspect]
     Indication: THROMBOSIS
     Route: 048
  4. FOSAMAX [Concomitant]
     Indication: OSTEOPOROSIS
     Route: 048
  5. POSTURE-D [Concomitant]
     Indication: OSTEOPOROSIS
     Route: 048
  6. ALLEGRA-D 12 HOUR [Concomitant]
     Indication: ACUTE SINUSITIS
     Route: 048
  7. TYLENOL AND CODEINE [Concomitant]
     Route: 048

REACTIONS (3)
  - ALOPECIA [None]
  - THROMBOSIS [None]
  - WEIGHT DECREASED [None]
